FAERS Safety Report 19087082 (Version 1)
Quarter: 2021Q2

REPORT INFORMATION
  Report Type: Spontaneous
  Country: US (occurrence: US)
  Receive Date: 20210402
  Receipt Date: 20210402
  Transmission Date: 20210717
  Serious: Yes (Death, Hospitalization)
  Sender: FDA-Public Use
  Company Number: US-MYLANLABS-2021M1019482

PATIENT
  Age: 49 Year
  Sex: Female

DRUGS (2)
  1. ACETAMINOPHEN. [Suspect]
     Active Substance: ACETAMINOPHEN
     Indication: PRODUCT USED FOR UNKNOWN INDICATION
     Dosage: UNK
     Route: 065
  2. ACETYLCYSTEINE. [Suspect]
     Active Substance: ACETYLCYSTEINE
     Indication: DRUG THERAPY
     Dosage: UNK
     Route: 065

REACTIONS (10)
  - Lactic acidosis [Fatal]
  - Toxicity to various agents [Fatal]
  - Metabolic acidosis [Fatal]
  - Tachycardia [Fatal]
  - Overdose [Fatal]
  - Tachypnoea [Fatal]
  - Drug ineffective [Fatal]
  - Hepatotoxicity [Fatal]
  - Unresponsive to stimuli [Fatal]
  - Acute hepatic failure [Fatal]
